FAERS Safety Report 7060102-0 (Version None)
Quarter: 2010Q4

REPORT INFORMATION
  Report Type: 
  Country: None (occurrence: None)
  Receive Date: 20101025
  Receipt Date: 20101015
  Transmission Date: 20110411
  Serious: Yes (Life-Threatening, Hospitalization)
  Sender: FDA-Public Use
  Company Number: GXKR2010GB11738

PATIENT
  Age: 75 Year
  Sex: Female

DRUGS (7)
  1. ALENDRONIC ACID (NGX) [Suspect]
     Indication: OSTEOPOROSIS PROPHYLAXIS
     Dosage: 70 MG, TOTAL
     Route: 048
     Dates: start: 20100714, end: 20100714
  2. ACICLOVIR [Concomitant]
     Route: 065
  3. BISPHOSPHONATES [Concomitant]
     Indication: OSTEOPOROSIS
     Route: 065
  4. CALCICHEW [Concomitant]
     Dosage: 1 DF, BID
     Route: 048
     Dates: start: 20100701
  5. OMEPRAZOLE [Concomitant]
     Dosage: 20 MG, UNK
     Route: 048
  6. PREDNISOLONE [Concomitant]
     Indication: TEMPORAL ARTERITIS
     Dosage: 6 MG, UNK
     Route: 048
  7. SIMVASTATIN [Concomitant]
     Dosage: 40 MG, QD
     Route: 048

REACTIONS (1)
  - IDIOPATHIC THROMBOCYTOPENIC PURPURA [None]
